FAERS Safety Report 5023978-4 (Version None)
Quarter: 2006Q2

REPORT INFORMATION
  Report Type: 
  Country: None (occurrence: None)
  Receive Date: 20060426
  Receipt Date: 20060323
  Transmission Date: 20061013
  Serious: Yes (Other)
  Sender: FDA-Public Use
  Company Number: 2006041801

PATIENT
  Sex: Female

DRUGS (4)
  1. LYRICA [Suspect]
     Indication: DIABETIC NEUROPATHY
  2. WARFARIN (WARFARIN) [Concomitant]
  3. LANTUS [Concomitant]
  4. LEVOXYL [Concomitant]

REACTIONS (1)
  - VOMITING [None]
